FAERS Safety Report 7409440-X (Version None)
Quarter: 2011Q2

REPORT INFORMATION
  Report Type: 
  Country: None (occurrence: None)
  Receive Date: 20110412
  Receipt Date: 20110408
  Transmission Date: 20111010
  Serious: Yes (Life-Threatening, Other)
  Sender: FDA-Public Use
  Company Number: US-BAYER-2011-031164

PATIENT
  Sex: Female

DRUGS (1)
  1. YAZ [Suspect]
     Indication: PRODUCT USED FOR UNKNOWN INDICATION
     Route: 048

REACTIONS (10)
  - HEPATIC CYST [None]
  - FATIGUE [None]
  - ASTHENIA [None]
  - INJURY [None]
  - HEPATIC NEOPLASM [None]
  - ANXIETY [None]
  - ANHEDONIA [None]
  - CHOLECYSTECTOMY [None]
  - INCISIONAL HERNIA [None]
  - PAIN [None]
